FAERS Safety Report 17196074 (Version 5)
Quarter: 2022Q4

REPORT INFORMATION
  Report Type: Spontaneous
  Country: US (occurrence: US)
  Receive Date: 20191224
  Receipt Date: 20221115
  Transmission Date: 20230113
  Serious: Yes (Other)
  Sender: FDA-Public Use
  Company Number: US-PFIZER INC-2019550890

PATIENT
  Age: 25 Year
  Sex: Male

DRUGS (1)
  1. BENEFIX [Suspect]
     Active Substance: COAGULATION FACTOR IX RECOMBINANT HUMAN\ISOPROPYL ALCOHOL
     Indication: Haemorrhage
     Dosage: 6500 I.U. +/-10% SLOW I.V. PUSH. AS NEEDED, EVERY 24 TO TREAT OR PREVENT BLEEDING
     Route: 042

REACTIONS (3)
  - Traumatic haemorrhage [Unknown]
  - Multiple injuries [Unknown]
  - Fall [Unknown]
